FAERS Safety Report 20527288 (Version 1)
Quarter: 2022Q1

REPORT INFORMATION
  Report Type: Spontaneous
  Country: US (occurrence: None)
  Receive Date: 20220228
  Receipt Date: 20220228
  Transmission Date: 20220423
  Serious: No
  Sender: FDA-Public Use
  Company Number: None

PATIENT
  Sex: Female

DRUGS (1)
  1. GAMMAGARD [Suspect]
     Active Substance: HUMAN IMMUNOGLOBULIN G
     Indication: Immunodeficiency
     Dosage: 2.5MG EVERY 3 WEEKS INTRAVENOUS?
     Route: 042
     Dates: start: 20220224

REACTIONS (5)
  - Cough [None]
  - Throat tightness [None]
  - Blood pressure increased [None]
  - Anxiety [None]
  - Infusion related reaction [None]
